FAERS Safety Report 4490079-3 (Version None)
Quarter: 2004Q4

REPORT INFORMATION
  Report Type: 
  Country: None (occurrence: None)
  Receive Date: 20041028
  Receipt Date: 20041019
  Transmission Date: 20050328
  Serious: Yes (Hospitalization)
  Sender: FDA-Public Use
  Company Number: 2004240217US

PATIENT
  Age: 68 Year
  Sex: Female
  Weight: 82.5 kg

DRUGS (18)
  1. CELEBREX [Suspect]
     Indication: BILE DUCT CANCER
     Dosage: SEE IMAGE
     Route: 048
     Dates: start: 20040412
  2. CELEBREX [Suspect]
     Indication: BILE DUCT CANCER
     Dosage: SEE IMAGE
     Route: 048
     Dates: start: 20040902
  3. CAMPTOSAR [Suspect]
     Indication: BILE DUCT CANCER
     Dosage: SEE IMAGE
     Route: 042
     Dates: start: 20040412, end: 20040903
  4. CAMPTOSAR [Suspect]
     Indication: BILE DUCT CANCER
     Dosage: SEE IMAGE
     Route: 042
     Dates: start: 20040902
  5. GEMCITABINE HYDROCHLORIDE (GEMCITABINE HYDROCHLORIDE) [Suspect]
     Indication: BILE DUCT CANCER
     Dosage: SEE IMAGE
     Route: 042
     Dates: start: 20040412
  6. GEMCITABINE HYDROCHLORIDE (GEMCITABINE HYDROCHLORIDE) [Suspect]
     Indication: BILE DUCT CANCER
     Dosage: SEE IMAGE
     Route: 042
     Dates: start: 20040902
  7. KEFLEX [Concomitant]
  8. SENNA (SENNA) [Concomitant]
  9. DOCUSATE (DOCUSATE) [Concomitant]
  10. CLONIDINE HCL [Concomitant]
  11. REGLAN [Concomitant]
  12. MS CONTIN [Concomitant]
  13. OXYCONTIN [Concomitant]
  14. REMERON [Concomitant]
  15. MORPHINE [Concomitant]
  16. MEGACE [Concomitant]
  17. IMODIUM [Concomitant]
  18. WARFARIN SODIUM [Concomitant]

REACTIONS (12)
  - BACTERAEMIA [None]
  - CATHETER RELATED INFECTION [None]
  - CELLULITIS [None]
  - CHILLS [None]
  - CONFUSIONAL STATE [None]
  - DEHYDRATION [None]
  - INTERNATIONAL NORMALISED RATIO INCREASED [None]
  - KLEBSIELLA INFECTION [None]
  - PANCYTOPENIA [None]
  - RENAL FAILURE ACUTE [None]
  - SWELLING FACE [None]
  - THROMBOCYTOPENIA [None]
